FAERS Safety Report 7511886-6 (Version None)
Quarter: 2011Q2

REPORT INFORMATION
  Report Type: 
  Country: None (occurrence: None)
  Receive Date: 20110531
  Receipt Date: 20110527
  Transmission Date: 20111010
  Serious: Yes (Other)
  Sender: FDA-Public Use
  Company Number: US-PFIZER INC-2011115554

PATIENT
  Sex: Female
  Weight: 99.773 kg

DRUGS (6)
  1. XALATAN [Concomitant]
     Dosage: UNK
  2. CHANTIX [Suspect]
     Dosage: 1 MG, UNK
     Route: 048
     Dates: end: 20100101
  3. KLONOPIN [Concomitant]
     Indication: ANXIETY DISORDER
     Dosage: UNK
  4. TRAZODONE [Concomitant]
     Indication: INSOMNIA
     Dosage: UNK
  5. ZANAFLEX [Concomitant]
     Indication: FIBROMYALGIA
     Dosage: UNK
  6. CHANTIX [Suspect]
     Indication: SMOKING CESSATION THERAPY
     Dosage: 0.5 MG, 1X/DAY
     Route: 048
     Dates: start: 20091201

REACTIONS (1)
  - MAJOR DEPRESSION [None]
